FAERS Safety Report 9527031 (Version 4)
Quarter: 2013Q4

REPORT INFORMATION
  Report Type: Report from Study
  Country: DE (occurrence: DE)
  Receive Date: 20130916
  Receipt Date: 20131028
  Transmission Date: 20140711
  Serious: Yes (Hospitalization)
  Sender: FDA-Public Use
  Company Number: DE-PFIZER INC-2013261839

PATIENT
  Age: 74 Year
  Sex: Male
  Weight: 92 kg

DRUGS (7)
  1. INLYTA [Suspect]
     Dosage: 5 MG IN THE MORNING AND 5 MG IN THE EVENING
     Route: 048
     Dates: start: 20130412, end: 20130506
  2. INLYTA [Suspect]
     Dosage: UNK
     Dates: end: 20130812
  3. INLYTA [Suspect]
     Dosage: 3 MG, 2X/DAY
     Route: 048
     Dates: start: 20130826
  4. EUPHYLONG [Concomitant]
     Indication: ASTHMA
     Dosage: UNK
     Route: 048
  5. BUDIAIR [Concomitant]
     Indication: ASTHMA
     Dosage: UNK
     Route: 048
  6. ALLOPURINOL [Concomitant]
     Indication: HYPERURICAEMIA
     Dosage: UNK
     Route: 048
  7. KERLONE [Concomitant]
     Indication: HYPERTENSION
     Dosage: UNK
     Route: 048

REACTIONS (2)
  - Asthenia [Not Recovered/Not Resolved]
  - Confusional state [Not Recovered/Not Resolved]
